FAERS Safety Report 24395123 (Version 1)
Quarter: 2024Q4

REPORT INFORMATION
  Report Type: Spontaneous
  Country: TH (occurrence: TH)
  Receive Date: 20241004
  Receipt Date: 20241004
  Transmission Date: 20250115
  Serious: Yes (Other)
  Sender: ASTELLAS
  Company Number: TH-ASTELLAS-2024-AER-009131

PATIENT
  Age: 34 Year
  Sex: Male

DRUGS (27)
  1. PROGRAF [Suspect]
     Active Substance: TACROLIMUS
     Indication: Prophylaxis against transplant rejection
     Dosage: 5.5 MG IN THE MORNING AND 5 MG IN THE EVENING
     Route: 048
  2. MYCOPHENOLATE MOFETIL [Concomitant]
     Active Substance: MYCOPHENOLATE MOFETIL
     Indication: Prophylaxis against transplant rejection
     Route: 048
  3. CALCITRIOL [Concomitant]
     Active Substance: CALCITRIOL
     Indication: Adjusted calcium
     Route: 048
  4. SODAMINT [SODIUM BICARBONATE] [Concomitant]
     Indication: Blood sodium decreased
     Route: 048
  5. SODAMINT [SODIUM BICARBONATE] [Concomitant]
     Dosage: 9 TABS/DAY (DURING HOSPITAL ADMISSION, DAY 7)
     Route: 065
  6. SODAMINT [SODIUM BICARBONATE] [Concomitant]
     Dosage: 9 TABS/DAY (DURING HOSPITAL ADMISSION, DAY 10)
     Route: 065
  7. SODAMINT [SODIUM BICARBONATE] [Concomitant]
     Dosage: 3 TABS/DAY (DURING HOSPITAL ADMISSION, DAY 1)
     Route: 065
  8. SODAMINT [SODIUM BICARBONATE] [Concomitant]
     Dosage: 9 TABS/DAY (AFTER DISCHARGE, DAY 10)
     Route: 065
  9. SODAMINT [SODIUM BICARBONATE] [Concomitant]
     Dosage: 12 TABS/DAY (AFTER DISCHARGE, DAY 14)
     Route: 065
  10. SODAMINT [SODIUM BICARBONATE] [Concomitant]
     Dosage: 16 TABS/DAY (AFTER DISCHARGE, WEEK 3)
     Route: 065
  11. SODAMINT [SODIUM BICARBONATE] [Concomitant]
     Dosage: 16 TABS/DAY (AFTER DISCHARGE, WEEK 4)
     Route: 065
  12. SODAMINT [SODIUM BICARBONATE] [Concomitant]
     Dosage: 16 TABS/DAY (AFTER DISCHARGE, WEEK 5)
     Route: 065
  13. SODAMINT [SODIUM BICARBONATE] [Concomitant]
     Dosage: 9 TABS/DAY (AFTER DISCHARGE, DAY 7)
     Route: 065
  14. DILTIAZEM [Concomitant]
     Active Substance: DILTIAZEM
     Indication: Hypertension
     Route: 048
  15. OMEPRAZOLE [Concomitant]
     Active Substance: OMEPRAZOLE
     Indication: Gastrointestinal disorder prophylaxis
     Route: 048
  16. ACYCLOVIR [Concomitant]
     Active Substance: ACYCLOVIR
     Indication: Infection prophylaxis
     Route: 048
  17. PREDNISOLONE [Concomitant]
     Active Substance: PREDNISOLONE
     Indication: Product used for unknown indication
     Route: 048
  18. CALCIUM CARBONATE [Concomitant]
     Active Substance: CALCIUM CARBONATE
     Indication: Product used for unknown indication
     Route: 048
  19. SULFAMETHOXAZOLE\TRIMETHOPRIM [Concomitant]
     Active Substance: SULFAMETHOXAZOLE\TRIMETHOPRIM
     Indication: Infection prophylaxis
     Dosage: 2 TABS/DAY
     Route: 048
  20. SULFAMETHOXAZOLE\TRIMETHOPRIM [Concomitant]
     Active Substance: SULFAMETHOXAZOLE\TRIMETHOPRIM
     Dosage: 2 TABS/DAY (DURING HOSPITAL ADMISSION, DAY 1)
     Route: 048
  21. SULFAMETHOXAZOLE\TRIMETHOPRIM [Concomitant]
     Active Substance: SULFAMETHOXAZOLE\TRIMETHOPRIM
     Dosage: 2 TABS/DAY (DURING HOSPITAL ADMISSION, DAY 7)
     Route: 048
  22. SULFAMETHOXAZOLE\TRIMETHOPRIM [Concomitant]
     Active Substance: SULFAMETHOXAZOLE\TRIMETHOPRIM
     Dosage: 2 TABS/DAY (DURING HOSPITAL ADMISSION, DAY 10)
     Route: 048
  23. SULFAMETHOXAZOLE\TRIMETHOPRIM [Concomitant]
     Active Substance: SULFAMETHOXAZOLE\TRIMETHOPRIM
     Dosage: 2 TABS/DAY (AFTER DISCHARGE, DAY 7)
     Route: 048
  24. SULFAMETHOXAZOLE\TRIMETHOPRIM [Concomitant]
     Active Substance: SULFAMETHOXAZOLE\TRIMETHOPRIM
     Dosage: 2 TABS/DAY (AFTER DISCHARGE, DAY 10)
     Route: 048
  25. SULFAMETHOXAZOLE\TRIMETHOPRIM [Concomitant]
     Active Substance: SULFAMETHOXAZOLE\TRIMETHOPRIM
     Dosage: 2 TABS/DAY (AFTER DISCHARGE, DAY 14)
     Route: 048
  26. BASILIXIMAB [Concomitant]
     Active Substance: BASILIXIMAB
     Indication: Product used for unknown indication
     Route: 065
  27. METHYLPREDNISOLONE [Concomitant]
     Active Substance: METHYLPREDNISOLONE
     Indication: Product used for unknown indication
     Route: 042

REACTIONS (13)
  - Complications of transplanted kidney [Recovering/Resolving]
  - Hyperkalaemia [Recovering/Resolving]
  - Metabolic acidosis [Recovering/Resolving]
  - Hypomagnesaemia [Recovering/Resolving]
  - Hypophosphataemia [Recovering/Resolving]
  - Renal tubular necrosis [Recovering/Resolving]
  - Vascular hyalinosis [Recovering/Resolving]
  - Renal lymphocele [Recovering/Resolving]
  - Renal tubular acidosis [Unknown]
  - Toxicity to various agents [Unknown]
  - Vitamin D deficiency [Unknown]
  - Hypoaldosteronism [Unknown]
  - Hyperparathyroidism [Unknown]
